FAERS Safety Report 15533101 (Version 2)
Quarter: 2018Q4

REPORT INFORMATION
  Report Type: Spontaneous
  Country: US (occurrence: US)
  Receive Date: 20181019
  Receipt Date: 20181019
  Transmission Date: 20190205
  Serious: Yes (Hospitalization, Other)
  Sender: FDA-Public Use
  Company Number: US-LUPIN PHARMACEUTICALS INC.-2016-00169

PATIENT
  Age: 42 Year
  Sex: Female

DRUGS (1)
  1. HYDROCODONE AND PARACETAMOL [Suspect]
     Active Substance: ACETAMINOPHEN\HYDROCODONE
     Indication: FIBROMYALGIA
     Dosage: UNK UNK,UNK,UNKNOWN
     Route: 065

REACTIONS (4)
  - Toxicity to various agents [Recovered/Resolved]
  - Intracranial pressure increased [Recovering/Resolving]
  - Brain oedema [Recovering/Resolving]
  - Acute hepatic failure [Recovered/Resolved]
